FAERS Safety Report 11604425 (Version 1)
Quarter: 2015Q4

REPORT INFORMATION
  Report Type: Spontaneous
  Country: MA (occurrence: MA)
  Receive Date: 20151007
  Receipt Date: 20151007
  Transmission Date: 20160304
  Serious: Yes (Other)
  Sender: FDA-Public Use
  Company Number: PHHY2015MA120421

PATIENT
  Age: 45 Year
  Sex: Male

DRUGS (1)
  1. ZOMETA [Suspect]
     Active Substance: ZOLEDRONIC ACID
     Indication: PLASMACYTOMA
     Dosage: UNK
     Route: 042
     Dates: start: 200912, end: 201007

REACTIONS (6)
  - Oral disorder [Recovered/Resolved]
  - Impaired healing [Recovered/Resolved]
  - Noninfective gingivitis [Recovered/Resolved]
  - Osteonecrosis of jaw [Recovered/Resolved]
  - Exposed bone in jaw [Recovered/Resolved]
  - Bone disorder [Recovered/Resolved]
